FAERS Safety Report 9661168 (Version 2)
Quarter: 2013Q4

REPORT INFORMATION
  Report Type: Spontaneous
  Country: CL (occurrence: CL)
  Receive Date: 20131031
  Receipt Date: 20131031
  Transmission Date: 20140711
  Serious: Yes (Other)
  Sender: FDA-Public Use
  Company Number: CL-ABBVIE-13P-034-1154269-00

PATIENT
  Sex: Female

DRUGS (1)
  1. PROGESTERONE [Suspect]
     Indication: MATERNAL EXPOSURE TIMING UNSPECIFIED
     Route: 064

REACTIONS (4)
  - Intraventricular haemorrhage [Unknown]
  - Psychomotor retardation [Unknown]
  - Premature baby [Unknown]
  - Foetal exposure during pregnancy [Unknown]
